FAERS Safety Report 7935267-6 (Version None)
Quarter: 2011Q4

REPORT INFORMATION
  Report Type: 
  Country: None (occurrence: None)
  Receive Date: 20111122
  Receipt Date: 20111121
  Transmission Date: 20120403
  Serious: Yes (Life-Threatening, Hospitalization)
  Sender: FDA-Public Use
  Company Number: JP-B.I. PHARMACEUTICALS,INC./RIDGEFIELD-2011-BP-24477NB

PATIENT
  Age: 83 Year
  Sex: Female
  Weight: 50 kg

DRUGS (7)
  1. ALDACTONE [Concomitant]
     Indication: CARDIAC FAILURE CHRONIC
     Dosage: 40 MG
     Route: 065
  2. PRADAXA [Suspect]
     Indication: ATRIAL FIBRILLATION
     Dosage: 220 MG
     Route: 048
     Dates: start: 20110624, end: 20110630
  3. FUROSEMIDE [Concomitant]
     Indication: CARDIAC FAILURE CHRONIC
     Dosage: 120 MG
     Route: 065
  4. ARGAMATE [Concomitant]
     Indication: HYPERKALAEMIA
     Route: 065
  5. MAGMITT [Concomitant]
     Indication: CONSTIPATION
     Dosage: 1980 MG
     Route: 065
  6. DIGOXIN [Concomitant]
     Indication: CARDIAC FAILURE CHRONIC
     Route: 065
  7. FERROUS CITRATE [Concomitant]
     Indication: ANAEMIA
     Dosage: 40 MG
     Route: 065

REACTIONS (4)
  - CARDIAC FAILURE [None]
  - LOWER GASTROINTESTINAL HAEMORRHAGE [None]
  - ANAEMIA [None]
  - PURPURA [None]
